FAERS Safety Report 4390860-5 (Version None)
Quarter: 2004Q3

REPORT INFORMATION
  Report Type: 
  Country: None (occurrence: None)
  Receive Date: 20040702
  Receipt Date: 20040702
  Transmission Date: 20050211
  Serious: No
  Sender: FDA-Public Use
  Company Number: None

PATIENT
  Age: 68 Year
  Sex: Female
  Weight: 72.5755 kg

DRUGS (6)
  1. SEROQUEL [Suspect]
     Indication: BIPOLAR DISORDER
     Dosage: 100 MG AT BEDTIME ORAL
     Route: 048
     Dates: start: 20040212, end: 20040501
  2. SEROQUEL [Suspect]
     Indication: BIPOLAR DISORDER
     Dosage: 100 MG AT BEDTIME ORAL
     Route: 048
     Dates: start: 20040501, end: 20040501
  3. LITHIUM [Concomitant]
  4. EFFEXOR [Concomitant]
  5. PAXIL [Concomitant]
  6. LORAZEPAM [Concomitant]

REACTIONS (2)
  - DRY MOUTH [None]
  - PHARYNGOLARYNGEAL PAIN [None]
